FAERS Safety Report 21735090 (Version 1)
Quarter: 2022Q4

REPORT INFORMATION
  Report Type: Spontaneous
  Country: US (occurrence: US)
  Receive Date: 20221215
  Receipt Date: 20221215
  Transmission Date: 20230113
  Serious: No
  Sender: FDA-Public Use
  Company Number: US-JNJFOC-20221227298

PATIENT

DRUGS (1)
  1. STELARA [Suspect]
     Active Substance: USTEKINUMAB
     Indication: Product used for unknown indication
     Route: 040

REACTIONS (7)
  - Infusion related reaction [Unknown]
  - Urticaria [Unknown]
  - Chest discomfort [Unknown]
  - Hypotension [Unknown]
  - Tachycardia [Unknown]
  - Nausea [Unknown]
  - Diarrhoea [Unknown]
